FAERS Safety Report 15345243 (Version 1)
Quarter: 2018Q3

REPORT INFORMATION
  Report Type: Report from Study
  Country: BR (occurrence: BR)
  Receive Date: 20180903
  Receipt Date: 20180903
  Transmission Date: 20181010
  Serious: Yes (Death, Hospitalization)
  Sender: FDA-Public Use
  Company Number: PHHY2018BR088345

PATIENT
  Age: 96 Year
  Sex: Female
  Weight: 53 kg

DRUGS (5)
  1. ANCORON [Concomitant]
     Active Substance: AMIODARONE HYDROCHLORIDE
     Indication: CARDIAC DISORDER
     Dosage: 1 DF, QD (10 YEARS AGO STARTED)
     Route: 048
  2. EXELON [Suspect]
     Active Substance: RIVASTIGMINE TARTRATE
     Indication: PRODUCT USED FOR UNKNOWN INDICATION
     Route: 065
  3. NAPRIX [Concomitant]
     Active Substance: RAMIPRIL
     Indication: BLOOD PRESSURE ABNORMAL
     Dosage: 1 DF, QD (5 YEARS AGO)
     Route: 048
  4. SOMALGIN CARDIO [Concomitant]
     Active Substance: ASPIRIN\DIHYDROXYALUMINUM AMINOACETATE ANHYDROUS\MAGNESIUM CARBONATE
     Indication: THROMBOSIS PROPHYLAXIS
     Dosage: 1 DF, QD (5 YEARS AGO)
     Route: 048
  5. EXELON PATCH [Suspect]
     Active Substance: RIVASTIGMINE
     Indication: DEMENTIA ALZHEIMER^S TYPE
     Dosage: 0.5 DF, QD (9.5 MG PATCH (10 CM2)) STARTED 1 YEAR AGO
     Route: 062

REACTIONS (5)
  - Asphyxia [Fatal]
  - Catarrh [Not Recovered/Not Resolved]
  - Wrong technique in product usage process [Unknown]
  - Nosocomial infection [Fatal]
  - Aspiration bronchial [Not Recovered/Not Resolved]

NARRATIVE: CASE EVENT DATE: 201807
